FAERS Safety Report 13747531 (Version 1)
Quarter: 2017Q3

REPORT INFORMATION
  Report Type: Spontaneous
  Country: US (occurrence: US)
  Receive Date: 20170712
  Receipt Date: 20170712
  Transmission Date: 20171127
  Serious: Yes (Hospitalization)
  Sender: FDA-Public Use
  Company Number: US-B.I. PHARMACEUTICALS,INC./RIDGEFIELD-2017-BI-037778

PATIENT
  Age: 42 Year
  Sex: Male
  Weight: 56.8 kg

DRUGS (28)
  1. TIPRANAVIR [Suspect]
     Active Substance: TIPRANAVIR
     Indication: HIV INFECTION
     Route: 065
     Dates: start: 20110801
  2. TENOFOVIR [Concomitant]
     Active Substance: TENOFOVIR
     Indication: PRODUCT USED FOR UNKNOWN INDICATION
     Route: 065
     Dates: start: 20110801
  3. MARAVIROC [Concomitant]
     Active Substance: MARAVIROC
     Indication: PRODUCT USED FOR UNKNOWN INDICATION
     Route: 065
     Dates: start: 20110801
  4. LAMIVUDINE. [Concomitant]
     Active Substance: LAMIVUDINE
     Route: 065
     Dates: start: 20110224, end: 20110715
  5. AZITHROMYCIN ANHYDROUS. [Concomitant]
     Active Substance: AZITHROMYCIN ANHYDROUS
     Indication: MYCOBACTERIUM AVIUM COMPLEX INFECTION
     Route: 048
     Dates: start: 20100226
  6. STAVUDINE. [Concomitant]
     Active Substance: STAVUDINE
     Route: 065
     Dates: start: 20100809, end: 20110715
  7. VALGANCICLOVIR. [Concomitant]
     Active Substance: VALGANCICLOVIR
     Indication: CYTOMEGALOVIRUS CHORIORETINITIS
     Route: 048
     Dates: start: 20110802
  8. PREDNISOLONE ACETATE 1% OPTHAMIS SUSPENSION [Concomitant]
     Indication: CYTOMEGALOVIRUS CHORIORETINITIS
     Route: 031
     Dates: start: 20110311
  9. DIPHENOXYLATE ATROPINE [Concomitant]
     Indication: DIARRHOEA
     Route: 048
     Dates: start: 20110330
  10. ATROPINE 1% OPHTHALMIC SOLUTION [Concomitant]
     Indication: CYTOMEGALOVIRUS CHORIORETINITIS
     Route: 031
     Dates: start: 20110311
  11. STAVUDINE. [Concomitant]
     Active Substance: STAVUDINE
     Indication: PRODUCT USED FOR UNKNOWN INDICATION
     Route: 065
     Dates: start: 20110801
  12. TIPRANAVIR [Suspect]
     Active Substance: TIPRANAVIR
     Dates: start: 20110225, end: 20110715
  13. TENOFOVIR [Concomitant]
     Active Substance: TENOFOVIR
     Route: 065
     Dates: start: 20110225, end: 20110715
  14. RITONAVIR. [Concomitant]
     Active Substance: RITONAVIR
     Indication: PRODUCT USED FOR UNKNOWN INDICATION
     Route: 065
     Dates: start: 20110801
  15. HYDROCODONE-ACETAMINOPHEN [Concomitant]
     Active Substance: ACETAMINOPHEN\HYDROCODONE
     Indication: EYE PAIN
     Route: 048
     Dates: start: 20110330
  16. LOPERAMIDE [Concomitant]
     Active Substance: LOPERAMIDE
     Indication: DIARRHOEA
     Route: 048
     Dates: start: 20110226
  17. RALTEGRAVIN [Concomitant]
     Route: 065
     Dates: start: 20100115, end: 20110715
  18. MARAVIROC [Concomitant]
     Active Substance: MARAVIROC
     Route: 065
     Dates: start: 20110513, end: 20110715
  19. RITONAVIR. [Concomitant]
     Active Substance: RITONAVIR
     Route: 065
     Dates: start: 20110513, end: 20110715
  20. ATOVAQUONE. [Concomitant]
     Active Substance: ATOVAQUONE
     Indication: PROPHYLAXIS
     Route: 048
     Dates: start: 20120208
  21. LAMIVUDINE. [Concomitant]
     Active Substance: LAMIVUDINE
     Indication: PRODUCT USED FOR UNKNOWN INDICATION
     Route: 065
     Dates: start: 20110801
  22. LORAZEPAM. [Concomitant]
     Active Substance: LORAZEPAM
     Indication: ANXIETY
     Route: 048
     Dates: start: 20110630
  23. MIRTAZAPINE. [Concomitant]
     Active Substance: MIRTAZAPINE
     Indication: DEPRESSION
     Route: 048
     Dates: start: 20101223
  24. ETHAMBUTOL [Concomitant]
     Active Substance: ETHAMBUTOL HYDROCHLORIDE
     Indication: LATENT TUBERCULOSIS
     Route: 048
     Dates: start: 20110226
  25. DAPSONE. [Concomitant]
     Active Substance: DAPSONE
     Indication: ANTIFUNGAL PROPHYLAXIS
     Route: 048
     Dates: start: 20110224
  26. FLUCONEZOLE [Concomitant]
     Indication: CANDIDA INFECTION
     Route: 048
     Dates: start: 20110513
  27. LIDOCAINE OINTMENT [Concomitant]
     Active Substance: LIDOCAINE
     Indication: CYTOMEGALOVIRUS CHORIORETINITIS
     Route: 061
     Dates: start: 20110311
  28. RALTEGRAVIN [Concomitant]
     Indication: PRODUCT USED FOR UNKNOWN INDICATION
     Route: 065
     Dates: start: 20110801

REACTIONS (2)
  - Clostridium difficile colitis [Recovered/Resolved]
  - Clostridium difficile colitis [Recovered/Resolved]

NARRATIVE: CASE EVENT DATE: 20110801
